FAERS Safety Report 14624430 (Version 1)
Quarter: 2020Q3

REPORT INFORMATION
  Report Type: Spontaneous
  Country: US (occurrence: US)
  Receive Date: 20180312
  Receipt Date: 20180312
  Transmission Date: 20201104
  Serious: Yes (Hospitalization, Other)
  Sender: FDA-Public Use
  Company Number: US-ROCHE-2081846

PATIENT
  Sex: Female
  Weight: 63.15 kg

DRUGS (1)
  1. ALECTINIB. [Suspect]
     Active Substance: ALECTINIB
     Indication: LUNG NEOPLASM MALIGNANT
     Route: 065
     Dates: start: 201707, end: 201710

REACTIONS (7)
  - Dysphagia [Recovering/Resolving]
  - Pneumonia [Unknown]
  - Pneumothorax [Unknown]
  - Oesophageal pain [Unknown]
  - Dyspnoea [Unknown]
  - Pyrexia [Recovering/Resolving]
  - Oropharyngeal pain [Unknown]

NARRATIVE: CASE EVENT DATE: 201710
